FAERS Safety Report 4877823-8 (Version None)
Quarter: 2006Q1

REPORT INFORMATION
  Report Type: 
  Country: None (occurrence: None)
  Receive Date: 20060109
  Receipt Date: 20060103
  Transmission Date: 20060701
  Serious: Yes (Death)
  Sender: FDA-Public Use
  Company Number: USA-2006-0022092

PATIENT
  Age: 43 Year
  Sex: Female
  Weight: 120.6 kg

DRUGS (3)
  1. OXYCODONE HCL [Suspect]
     Indication: DRUG USE FOR UNKNOWN INDICATION
  2. DIAZEPAM [Suspect]
     Indication: DRUG USE FOR UNKNOWN INDICATION
  3. GABAPENTIN [Suspect]
     Indication: DRUG USE FOR UNKNOWN INDICATION

REACTIONS (13)
  - ACCIDENTAL DEATH [None]
  - ADENOMYOSIS [None]
  - ANTI-HBC IGG ANTIBODY POSITIVE [None]
  - ARTERIOSCLEROSIS [None]
  - CARDIAC FAILURE CONGESTIVE [None]
  - CARDIOMEGALY [None]
  - CHOLELITHIASIS [None]
  - HEPATOSPLENOMEGALY [None]
  - MULTIPLE DRUG OVERDOSE ACCIDENTAL [None]
  - OBESITY [None]
  - PULMONARY CONGESTION [None]
  - RENAL ARTERIOSCLEROSIS [None]
  - UTERINE LEIOMYOMA [None]
